FAERS Safety Report 25315329 (Version 2)
Quarter: 2025Q2

REPORT INFORMATION
  Report Type: Spontaneous
  Country: US (occurrence: US)
  Receive Date: 20250514
  Receipt Date: 20250630
  Transmission Date: 20250717
  Serious: No
  Sender: NEUROCRINE BIOSCIENCES
  Company Number: US-NEUROCRINE BIOSCIENCES INC.-2025NBI04523

PATIENT
  Age: 60 Year
  Sex: Female

DRUGS (6)
  1. INGREZZA [Suspect]
     Active Substance: VALBENAZINE DITOSYLATE
     Indication: Tardive dyskinesia
     Route: 065
     Dates: start: 20250213, end: 20250313
  2. INVEGA [Concomitant]
     Active Substance: PALIPERIDONE
     Indication: Affective disorder
     Route: 048
     Dates: start: 20190701
  3. LAMICTAL [Concomitant]
     Active Substance: LAMOTRIGINE
     Indication: Affective disorder
     Dates: start: 20220602
  4. BENZTROPINE [Concomitant]
     Active Substance: BENZTROPINE
     Indication: Extrapyramidal disorder
     Route: 048
     Dates: start: 20250213, end: 20250313
  5. ATENOLOL [Concomitant]
     Active Substance: ATENOLOL
     Indication: Hypertension
     Route: 048
     Dates: start: 2022
  6. ATORVASTATIN [Concomitant]
     Active Substance: ATORVASTATIN
     Indication: Blood cholesterol increased
     Route: 048
     Dates: start: 2023

REACTIONS (1)
  - Urticaria [Recovered/Resolved]
